FAERS Safety Report 9463204 (Version 1)
Quarter: 2013Q3

REPORT INFORMATION
  Report Type: Spontaneous
  Country: AU (occurrence: AU)
  Receive Date: 20130818
  Receipt Date: 20130818
  Transmission Date: 20140515
  Serious: Yes (Other)
  Sender: FDA-Public Use
  Company Number: PHHY2013AU087611

PATIENT
  Age: 54 Year
  Sex: Female
  Weight: 46 kg

DRUGS (2)
  1. SCITROPIN [Suspect]
     Indication: MENOPAUSAL SYMPTOMS
     Dosage: 7 CLICKS/DAY, 6 DAYS/WEEK
     Route: 058
  2. PROZAC [Concomitant]

REACTIONS (2)
  - Breast cancer [Unknown]
  - Drug administration error [Unknown]
